FAERS Safety Report 9789215 (Version 1)
Quarter: 2013Q4

REPORT INFORMATION
  Report Type: Spontaneous
  Country: RS (occurrence: RS)
  Receive Date: 20131230
  Receipt Date: 20131230
  Transmission Date: 20140711
  Serious: Yes (Other)
  Sender: FDA-Public Use
  Company Number: RS-ACTAVISPR-2013-23469

PATIENT
  Age: 62 Year
  Sex: Female
  Weight: 76 kg

DRUGS (5)
  1. SINDAXEL [Suspect]
     Indication: NEOPLASM
     Dosage: 30 MG, SINGLE
     Route: 042
     Dates: start: 20131119, end: 20131119
  2. DEXASON                            /00016001/ [Concomitant]
     Indication: PROPHYLAXIS
     Dosage: 4 MG, SINGLE
     Route: 042
     Dates: start: 20131119, end: 20131119
  3. RANITIDIN [Concomitant]
     Indication: PROPHYLAXIS
     Dosage: 50 MG, SINGLE
     Route: 042
     Dates: start: 20131119, end: 20131119
  4. ONDASAN [Concomitant]
     Indication: PROPHYLAXIS
     Dosage: 8 MG, PRN
     Route: 048
     Dates: start: 20131119, end: 20131119
  5. SYNOPEN                            /00379601/ [Concomitant]
     Indication: PROPHYLAXIS
     Dosage: 20 MG, SINGLE
     Route: 042
     Dates: start: 20131119, end: 20131119

REACTIONS (4)
  - Chest discomfort [Recovered/Resolved]
  - Abdominal pain [Recovered/Resolved]
  - Nausea [Recovered/Resolved]
  - Headache [Recovered/Resolved]
